FAERS Safety Report 24380120 (Version 4)
Quarter: 2025Q4

REPORT INFORMATION
  Report Type: Spontaneous
  Country: US (occurrence: US)
  Receive Date: 20240930
  Receipt Date: 20251202
  Transmission Date: 20260118
  Serious: Yes (Hospitalization, Other)
  Sender: BIOMARIN
  Company Number: US-SA-2024SA276242

PATIENT
  Age: 2 Year
  Sex: Female
  Weight: 16.9 kg

DRUGS (3)
  1. LARONIDASE [Suspect]
     Active Substance: LARONIDASE
     Indication: Mucopolysaccharidosis I
     Dosage: 8.7 MG, QW
     Dates: start: 202112, end: 2025
  2. LARONIDASE [Suspect]
     Active Substance: LARONIDASE
     Dosage: 11.6 (UNITS UNKNOWN), QW
     Dates: start: 2025
  3. CARVEDILOL [Concomitant]
     Active Substance: CARVEDILOL
     Indication: Product used for unknown indication
     Dosage: UNK

REACTIONS (15)
  - Acute respiratory failure [Recovered/Resolved]
  - Upper respiratory tract infection [Recovered/Resolved]
  - Oxygen saturation decreased [Recovering/Resolving]
  - Metapneumovirus infection [Recovered/Resolved]
  - Bronchitis [Recovered/Resolved]
  - Rhinovirus infection [Recovered/Resolved]
  - Snoring [Unknown]
  - Cerumen impaction [Recovered/Resolved]
  - Hirsutism [Unknown]
  - Dermatitis atopic [Unknown]
  - Rash [Unknown]
  - Illness [Unknown]
  - Dermal cyst [Recovered/Resolved]
  - Arachnoid cyst [Unknown]
  - Device deposit issue [Unknown]

NARRATIVE: CASE EVENT DATE: 20240301
